FAERS Safety Report 8395062-3 (Version None)
Quarter: 2012Q1

REPORT INFORMATION
  Report Type: 
  Country: None (occurrence: None)
  Receive Date: 20120323
  Receipt Date: 20110330
  Transmission Date: 20120608
  Serious: Yes (Other)
  Sender: FDA-Public Use
  Company Number: 163-21880-11040125

PATIENT
  Age: 68 Year
  Sex: Female

DRUGS (4)
  1. SIMVASTIN (SIMVASTATIN) [Concomitant]
  2. PREDNISONE TAB [Concomitant]
  3. DIFLUCAN [Concomitant]
  4. REVLIMID [Suspect]
     Indication: MULTIPLE MYELOMA
     Dosage: 10 MG, DAILY FOR 28 DAYS, PO
     Route: 048
     Dates: start: 20110111

REACTIONS (1)
  - RASH [None]
